FAERS Safety Report 12618853 (Version 2)
Quarter: 2016Q3

REPORT INFORMATION
  Report Type: Spontaneous
  Country: US (occurrence: US)
  Receive Date: 20160803
  Receipt Date: 20160818
  Transmission Date: 20161109
  Serious: Yes (Other)
  Sender: FDA-Public Use
  Company Number: US-LEO PHARMA-243316

PATIENT
  Age: 46 Year
  Sex: Female

DRUGS (2)
  1. CLONAZEPAM. [Concomitant]
     Active Substance: CLONAZEPAM
     Indication: PRODUCT USED FOR UNKNOWN INDICATION
  2. PICATO [Suspect]
     Active Substance: INGENOL MEBUTATE
     Indication: ACTINIC KERATOSIS
     Dosage: 1 TUBE
     Route: 061
     Dates: start: 20160725, end: 20160725

REACTIONS (21)
  - Headache [Recovered/Resolved]
  - Application site erythema [Not Recovered/Not Resolved]
  - Paraesthesia oral [Recovered/Resolved]
  - Chapped lips [Recovered/Resolved]
  - Drug administration error [Unknown]
  - Throat tightness [Recovered/Resolved]
  - Application site discolouration [Unknown]
  - Dyspnoea [Recovered/Resolved]
  - Application site swelling [Recovered/Resolved]
  - Lip swelling [Recovered/Resolved]
  - Eye irritation [Recovered/Resolved]
  - Acne [Not Recovered/Not Resolved]
  - Eyelid oedema [Recovered/Resolved]
  - Scar [Not Recovered/Not Resolved]
  - Application site pain [Recovered/Resolved]
  - Eyelid ptosis [Recovered/Resolved]
  - Vision blurred [Not Recovered/Not Resolved]
  - Lacrimation increased [Recovered/Resolved]
  - Pruritus [Not Recovered/Not Resolved]
  - Skin exfoliation [Recovering/Resolving]
  - Blister [Recovering/Resolving]

NARRATIVE: CASE EVENT DATE: 20160725
